FAERS Safety Report 5217532-9 (Version None)
Quarter: 2007Q1

REPORT INFORMATION
  Report Type: 
  Country: None (occurrence: None)
  Receive Date: 20070124
  Receipt Date: 20070123
  Transmission Date: 20070707
  Serious: Yes (Death)
  Sender: FDA-Public Use
  Company Number: GB-BRISTOL-MYERS SQUIBB COMPANY-13652011

PATIENT
  Sex: Female

DRUGS (2)
  1. HYDREA [Suspect]
     Indication: PSORIASIS
     Route: 048
     Dates: start: 20060407, end: 20061201
  2. INSULIN [Concomitant]
     Indication: DIABETES MELLITUS
     Route: 058

REACTIONS (2)
  - MACROCYTOSIS [None]
  - SUDDEN DEATH [None]
